FAERS Safety Report 12585818 (Version 1)
Quarter: 2016Q3

REPORT INFORMATION
  Report Type: Spontaneous
  Country: US (occurrence: None)
  Receive Date: 20160722
  Receipt Date: 20160722
  Transmission Date: 20161109
  Serious: Yes (Death)
  Sender: FDA-Public Use
  Company Number: None

PATIENT
  Age: 70 Year
  Sex: Female

DRUGS (8)
  1. TRAMADOL. [Concomitant]
     Active Substance: TRAMADOL
  2. BUMETANIDE. [Concomitant]
     Active Substance: BUMETANIDE
  3. SPIRONOLACTONE. [Concomitant]
     Active Substance: SPIRONOLACTONE
  4. METOLAZONE. [Concomitant]
     Active Substance: METOLAZONE
  5. OPSUMIT [Suspect]
     Active Substance: MACITENTAN
     Indication: HEART DISEASE CONGENITAL
     Route: 048
     Dates: start: 201510, end: 201607
  6. PANTOPRAZOLE [Concomitant]
     Active Substance: PANTOPRAZOLE SODIUM
  7. DIGOXIN. [Concomitant]
     Active Substance: DIGOXIN
  8. OPSUMIT [Suspect]
     Active Substance: MACITENTAN
     Indication: CONNECTIVE TISSUE DISORDER
     Route: 048
     Dates: start: 201510, end: 201607

REACTIONS (5)
  - General physical health deterioration [None]
  - Respiratory failure [None]
  - Hypophagia [None]
  - Pneumonia [None]
  - Increased upper airway secretion [None]

NARRATIVE: CASE EVENT DATE: 20160710
